FAERS Safety Report 5129652-8 (Version None)
Quarter: 2006Q4

REPORT INFORMATION
  Report Type: 
  Country: None (occurrence: None)
  Receive Date: 20061018
  Receipt Date: 20040819
  Transmission Date: 20070319
  Serious: Yes (Death)
  Sender: FDA-Public Use
  Company Number: US-GLAXOSMITHKLINE-A0523743A

PATIENT
  Age: 43 Year
  Sex: Male

DRUGS (2)
  1. PAXIL CR [Suspect]
     Indication: DEPRESSION
     Dosage: 25MG PER DAY
     Route: 048
     Dates: start: 20030522, end: 20040510
  2. PRILOSEC [Concomitant]

REACTIONS (7)
  - ADVERSE EVENT [None]
  - ANXIETY [None]
  - COMPLETED SUICIDE [None]
  - INSOMNIA [None]
  - NIGHT SWEATS [None]
  - PAIN [None]
  - STOMACH DISCOMFORT [None]
